FAERS Safety Report 4975149-5 (Version None)
Quarter: 2006Q2

REPORT INFORMATION
  Report Type: 
  Country: None (occurrence: None)
  Receive Date: 20060411
  Receipt Date: 20060328
  Transmission Date: 20061013
  Serious: Yes (Hospitalization)
  Sender: FDA-Public Use
  Company Number: 2006P1000143

PATIENT
  Age: 62 Year
  Sex: Male
  Weight: 60 kg

DRUGS (3)
  1. RETEPLASE (RETEPLASE) [Suspect]
     Indication: ACUTE MYOCARDIAL INFARCTION
     Dosage: 5 IU X1 IVB ; 5 IU X1 IVB
     Route: 040
     Dates: start: 20040908, end: 20040908
  2. REOPRO [Suspect]
     Indication: ACUTE MYOCARDIAL INFARCTION
     Dosage: 7.5 ML X1 IVB ; 4.0 ML QH
     Route: 040
     Dates: start: 20040908, end: 20040908
  3. HEPARIN [Concomitant]

REACTIONS (3)
  - BLOOD CHOLESTEROL INCREASED [None]
  - CORONARY ARTERY STENOSIS [None]
  - HIGH DENSITY LIPOPROTEIN INCREASED [None]
